FAERS Safety Report 6037474-9 (Version None)
Quarter: 2009Q1

REPORT INFORMATION
  Report Type: 
  Country: None (occurrence: None)
  Receive Date: 20090114
  Receipt Date: 20081215
  Transmission Date: 20090719
  Serious: Yes (Other)
  Sender: FDA-Public Use
  Company Number: US-PFIZER INC-2008152312

PATIENT
  Sex: Male
  Weight: 112.49 kg

DRUGS (13)
  1. NARDIL [Suspect]
     Indication: MAJOR DEPRESSION
     Dosage: 15 MG, 1X/DAY
     Route: 048
     Dates: start: 19700101
  2. MIRAPEX [Concomitant]
     Dosage: UNK
  3. LOPID [Concomitant]
     Dosage: UNK
  4. PROTONIX [Concomitant]
     Dosage: UNK
  5. GLUCOPHAGE [Concomitant]
     Dosage: UNK
  6. SIMVASTATIN [Concomitant]
     Dosage: UNK
  7. COREG [Concomitant]
     Dosage: UNK
  8. GLIPIZIDE [Concomitant]
     Dosage: UNK
  9. LYRICA [Concomitant]
     Dosage: UNK
  10. POTASSIUM [Concomitant]
     Dosage: UNK
  11. CENTRUM [Concomitant]
     Dosage: UNK
  12. ACETYLSALICYLIC ACID [Concomitant]
     Dosage: UNK
  13. DIPROSONE [Concomitant]
     Indication: PSORIASIS
     Dosage: UNK

REACTIONS (4)
  - DEMYELINATION [None]
  - DEPRESSION [None]
  - FALL [None]
  - WEIGHT INCREASED [None]
